FAERS Safety Report 9459642 (Version 1)
Quarter: 2013Q3

REPORT INFORMATION
  Report Type: Spontaneous
  Country: US (occurrence: US)
  Receive Date: 20130815
  Receipt Date: 20130815
  Transmission Date: 20140515
  Serious: No
  Sender: FDA-Public Use
  Company Number: US-COVIDIEN/TYCO HEALTHCARE/MALLINCKRODT-T201303357

PATIENT
  Age: 71 Year
  Sex: Female
  Weight: 108.84 kg

DRUGS (7)
  1. FENTANYL TRANSDERMAL SYSTEM [Suspect]
     Indication: MUSCULOSKELETAL PAIN
     Dosage: 50 UG/HR,ONE FTS Q 3 DAYS
     Route: 062
  2. FENTANYL [Suspect]
     Dosage: 12 MG, ONE FTS Q 3 DAYS
     Dates: start: 201302
  3. OXYCODONE [Concomitant]
     Dosage: 15 MG, UNK
     Route: 048
  4. TYLENOL                            /00020001/ [Concomitant]
     Route: 048
  5. CLONAZEPAM [Concomitant]
     Dosage: 1 MG, UNK
     Route: 048
  6. NITROGLYCERIN [Concomitant]
     Route: 048
  7. VENTOLIN                           /00139501/ [Concomitant]
     Route: 048

REACTIONS (4)
  - Generalised oedema [Not Recovered/Not Resolved]
  - Rash vesicular [Not Recovered/Not Resolved]
  - Rash generalised [Not Recovered/Not Resolved]
  - Pruritus [Not Recovered/Not Resolved]
